FAERS Safety Report 7106310-1 (Version None)
Quarter: 2010Q4

REPORT INFORMATION
  Report Type: 
  Country: None (occurrence: None)
  Receive Date: 20101116
  Receipt Date: 20101110
  Transmission Date: 20110411
  Serious: Yes (Other)
  Sender: FDA-Public Use
  Company Number: GB-PFIZER INC-2010145558

PATIENT
  Age: 49 Year
  Sex: Male

DRUGS (1)
  1. DOXAZOSIN MESYLATE [Suspect]
     Dosage: UNK

REACTIONS (6)
  - AURA [None]
  - FACE OEDEMA [None]
  - FATIGUE [None]
  - LETHARGY [None]
  - NECK PAIN [None]
  - TUNNEL VISION [None]
